FAERS Safety Report 10487406 (Version 3)
Quarter: 2014Q4

REPORT INFORMATION
  Report Type: Spontaneous
  Country: AR (occurrence: AR)
  Receive Date: 20141001
  Receipt Date: 20141015
  Transmission Date: 20150528
  Serious: Yes (Other)
  Sender: FDA-Public Use
  Company Number: AR-ELI_LILLY_AND_COMPANY-AR201405010405

PATIENT
  Age: 41 Year
  Sex: Female

DRUGS (4)
  1. HUMULIN N [Suspect]
     Active Substance: INSULIN HUMAN
     Dosage: 55 U, EACH EVENING
     Route: 058
     Dates: end: 20140805
  2. METFORMIN [Concomitant]
     Active Substance: METFORMIN HYDROCHLORIDE
     Indication: GESTATIONAL DIABETES
     Dosage: 850 MG, BID
  3. HUMULIN N [Suspect]
     Active Substance: INSULIN HUMAN
     Dosage: 20/25 U, EACH MORNING
     Route: 058
     Dates: end: 20140805
  4. HUMULIN N [Suspect]
     Active Substance: INSULIN HUMAN
     Indication: GESTATIONAL DIABETES
     Dosage: 14 TO 16 U, PRN EACH EVENING
     Route: 058
     Dates: start: 201405

REACTIONS (3)
  - Suppressed lactation [Not Recovered/Not Resolved]
  - Injury associated with device [Unknown]
  - Maternal exposure timing unspecified [Recovered/Resolved]

NARRATIVE: CASE EVENT DATE: 201405
